FAERS Safety Report 5915552-X (Version None)
Quarter: 2008Q4

REPORT INFORMATION
  Report Type: 
  Country: None (occurrence: None)
  Receive Date: 20081010
  Receipt Date: 20080804
  Transmission Date: 20090506
  Serious: No
  Sender: FDA-Public Use
  Company Number: A0740921A

PATIENT
  Age: 51 Year
  Sex: Female

DRUGS (6)
  1. TYKERB [Suspect]
     Indication: BREAST CANCER
     Dosage: 1250MG PER DAY
     Route: 048
     Dates: start: 20080723
  2. XELODA [Concomitant]
  3. NEXIUM [Concomitant]
  4. MORPHINE [Concomitant]
  5. ATIVAN [Concomitant]
  6. OXYCODONE HCL [Concomitant]

REACTIONS (3)
  - ABDOMINAL PAIN UPPER [None]
  - DIARRHOEA [None]
  - RASH [None]
